FAERS Safety Report 14859210 (Version 1)
Quarter: 2018Q2

REPORT INFORMATION
  Report Type: Spontaneous
  Country: FR (occurrence: FR)
  Receive Date: 20180508
  Receipt Date: 20180508
  Transmission Date: 20180711
  Serious: Yes (Other)
  Sender: FDA-Public Use
  Company Number: FR-MERCK KGAA-2047384

PATIENT
  Age: 31 Year
  Sex: Female

DRUGS (1)
  1. NOVOTHYROX [Suspect]
     Active Substance: LEVOTHYROXINE SODIUM
     Indication: PRODUCT USED FOR UNKNOWN INDICATION

REACTIONS (17)
  - Social avoidant behaviour [None]
  - Alopecia [None]
  - Blood thyroid stimulating hormone decreased [None]
  - Anxiety [None]
  - Hypersomnia [None]
  - Dizziness [None]
  - Arthralgia [None]
  - Asthenia [None]
  - Emotional distress [None]
  - Anti-thyroid antibody positive [None]
  - Fatigue [None]
  - Irritability [None]
  - Anger [None]
  - Blood cholesterol increased [None]
  - Weight increased [None]
  - Loss of personal independence in daily activities [None]
  - Mood swings [None]

NARRATIVE: CASE EVENT DATE: 20170323
